FAERS Safety Report 8528473-3 (Version None)
Quarter: 2012Q3

REPORT INFORMATION
  Report Type: 
  Country: None (occurrence: None)
  Receive Date: 20120723
  Receipt Date: 20120711
  Transmission Date: 20120928
  Serious: Yes (Other)
  Sender: FDA-Public Use
  Company Number: JP-BRISTOL-MYERS SQUIBB COMPANY-16763526

PATIENT
  Age: 45 Year
  Sex: Male
  Weight: 86 kg

DRUGS (11)
  1. METFORMIN HCL [Concomitant]
     Dosage: TABS
  2. ABILIFY [Concomitant]
     Dosage: ABILIFY ORAL SOLUTION 0.1%
     Dates: start: 20120428, end: 20120518
  3. BROTIZOLAM [Concomitant]
     Dosage: TABS
     Dates: start: 20120420
  4. SEPAZON [Concomitant]
     Dosage: TABS
     Dates: start: 20120606, end: 20120627
  5. BEZAFIBRATE [Concomitant]
     Dosage: BESASTAR SR TABS
  6. ZOTEPINE [Concomitant]
     Dosage: TABS
     Dates: start: 20120420, end: 20120528
  7. ABILIFY [Suspect]
     Indication: BIPOLAR DISORDER
     Dosage: ABILIFY ORODISPERSIBLE TABS DOSE REDUCED:24MG/DAY,19MAY12-06JUN12(6MG),07JUN12-10JUN12
     Route: 048
     Dates: start: 20120519, end: 20120611
  8. ZOTEPINE [Concomitant]
     Dates: start: 20120424, end: 20120528
  9. TEGRETOL [Concomitant]
     Dosage: TABS
     Dates: start: 20120420
  10. LITHIUM CARBONATE [Concomitant]
     Dosage: TABS
     Dates: start: 20100317
  11. FLUNITRAZEPAM [Concomitant]
     Dosage: FLUNITRAZEPAM TABS
     Dates: start: 20120420

REACTIONS (5)
  - MEMORY IMPAIRMENT [None]
  - HYPERKINESIA [None]
  - INSOMNIA [None]
  - DELIRIUM [None]
  - HALLUCINATION, AUDITORY [None]
